FAERS Safety Report 10744714 (Version 1)
Quarter: 2015Q1

REPORT INFORMATION
  Report Type: Spontaneous
  Country: US (occurrence: None)
  Receive Date: 20150126
  Receipt Date: 20150126
  Transmission Date: 20150721
  Serious: Yes (Other)
  Sender: FDA-Public Use
  Company Number: None

PATIENT
  Age: 20 Year
  Sex: Female
  Weight: 49.9 kg

DRUGS (3)
  1. SALICYLIC ACID. [Suspect]
     Active Substance: SALICYLIC ACID
     Dates: start: 20140115, end: 20150123
  2. BENZOYL PEROXIDE. [Suspect]
     Active Substance: BENZOYL PEROXIDE
     Indication: ACNE
  3. SALICYLIC ACID. [Suspect]
     Active Substance: SALICYLIC ACID
     Indication: SKIN COSMETIC PROCEDURE
     Dates: start: 20140115, end: 20150123

REACTIONS (5)
  - Burning sensation [None]
  - Physical product label issue [None]
  - Erythema [None]
  - Feeling hot [None]
  - Pain [None]
